FAERS Safety Report 6830902-8 (Version None)
Quarter: 2010Q3

REPORT INFORMATION
  Report Type: 
  Country: None (occurrence: None)
  Receive Date: 20100712
  Receipt Date: 20100618
  Transmission Date: 20110219
  Serious: Yes (Death, Hospitalization)
  Sender: FDA-Public Use
  Company Number: DE-BAYER-201025969GPV

PATIENT
  Age: 76 Year
  Sex: Female
  Weight: 50 kg

DRUGS (20)
  1. CAMPATH [Suspect]
     Indication: CHRONIC LYMPHOCYTIC LEUKAEMIA
     Dosage: DOSE ESCALATION
     Route: 058
     Dates: start: 20100408, end: 20100408
  2. CAMPATH [Suspect]
     Dosage: TOTAL DAILY DOSE: 30 MG
     Route: 058
     Dates: start: 20100409, end: 20100514
  3. FORTECORTIN [Suspect]
     Indication: CHRONIC LYMPHOCYTIC LEUKAEMIA
     Dosage: AS USED: 40 MG
     Route: 048
     Dates: start: 20100409, end: 20100501
  4. NEULASTA [Suspect]
     Indication: PROPHYLAXIS
     Dosage: ON DAYS 1 AND 15 PER CYCLE, EVERY 4 WEEKS (PER PROTOCOL)
     Route: 058
     Dates: start: 20100409, end: 20100505
  5. NEULASTA [Concomitant]
     Indication: NEUTROPENIA
     Dosage: ADDITIONALLY TO STUDY PROTOCOL TREATMENT
     Dates: start: 20100421
  6. NEULASTA [Concomitant]
     Dosage: ADDITIONALLY TO STUDY PROTOCOL TREATMENT
     Dates: start: 20100505
  7. RED BLOOD CELLS [Concomitant]
     Route: 042
  8. VFEND [Concomitant]
     Indication: BRONCHOPULMONARY ASPERGILLOSIS
     Dosage: TOTAL DAILY DOSE: 400 MG
     Dates: end: 20100101
  9. FLEBOGAMMA (HUMAN IGG) [Concomitant]
     Indication: HUMORAL IMMUNE DEFECT
     Dates: start: 20081001
  10. LENALIDOMIDE [Concomitant]
     Indication: CHRONIC LYMPHOCYTIC LEUKAEMIA
     Dosage: R-BP REGIMEN, 6 CYCLES
     Dates: start: 20090301, end: 20090901
  11. BENDAMUSTINE [Concomitant]
     Indication: CHRONIC LYMPHOCYTIC LEUKAEMIA
     Dosage: 4 CYCLES OF BP-REGIMEN
     Dates: start: 20091001, end: 20100201
  12. BENDAMUSTINE [Concomitant]
     Dosage: R-BP REGIMEN, 6 CYCLES
     Dates: start: 20090301, end: 20090901
  13. PREDNISONE [Concomitant]
     Indication: CHRONIC LYMPHOCYTIC LEUKAEMIA
     Dosage: 4 CYCLES OF BP-REGIMEN
     Dates: start: 20091001, end: 20100201
  14. PREDNISONE [Concomitant]
     Dosage: R-BP REGIMEN, 6 CYCLES
     Dates: start: 20090301, end: 20090901
  15. PANTOZOL [Concomitant]
     Dosage: TOTAL DAILY DOSE: 80 MG
     Route: 048
  16. LEVOTHYROXINE SODIUM [Concomitant]
     Route: 048
  17. COTRIM [Concomitant]
     Indication: INFECTION PROPHYLAXIS
  18. ACYCLOVIR [Concomitant]
     Indication: INFECTION PROPHYLAXIS
     Dosage: TOTAL DAILY DOSE: 1600 MG
  19. TAVANIC [Concomitant]
     Indication: INFECTION PROPHYLAXIS
  20. ALLOPURINOL [Concomitant]
     Indication: PROPHYLAXIS

REACTIONS (7)
  - BRONCHOPULMONARY ASPERGILLOSIS [None]
  - CEREBRAL ASPERGILLOSIS [None]
  - FEBRILE NEUTROPENIA [None]
  - HAEMORRHAGIC TRANSFORMATION STROKE [None]
  - MENINGITIS [None]
  - RESPIRATORY FAILURE [None]
  - SYSTEMIC MYCOSIS [None]
